FAERS Safety Report 10262253 (Version 1)
Quarter: 2014Q2

REPORT INFORMATION
  Report Type: Spontaneous
  Country: US (occurrence: None)
  Receive Date: 20140624
  Receipt Date: 20140624
  Transmission Date: 20141212
  Serious: No
  Sender: FDA-Public Use
  Company Number: None

PATIENT
  Age: 27 Year
  Sex: Female
  Weight: 68.04 kg

DRUGS (1)
  1. ABILIFY 15MG [Suspect]
     Indication: BIPOLAR DISORDER
     Dosage: 1 PILL, ONCE DAILY, TAKEN BY MOUTH.
     Route: 048

REACTIONS (4)
  - Pregnancy [None]
  - Exposure during pregnancy [None]
  - Premature labour [None]
  - Suppressed lactation [None]
